FAERS Safety Report 8952827 (Version 2)
Quarter: 2012Q4

REPORT INFORMATION
  Report Type: 
  Country: US (occurrence: US)
  Receive Date: 20121204
  Receipt Date: 20121220
  Transmission Date: 20130627
  Serious: Yes (Hospitalization)
  Sender: FDA-Public Use
  Company Number: US-ACTELION-A-US2012-75273

PATIENT
  Age: 82 Year
  Sex: Female

DRUGS (9)
  1. VELETRI [Suspect]
     Indication: PULMONARY ARTERIAL HYPERTENSION
     Dosage: 20 ng/kg, per min
     Route: 042
     Dates: start: 20120721
  2. VELETRI [Suspect]
     Dosage: 17 ng/kg, UNK
     Route: 042
     Dates: start: 20121121
  3. SILDENAFIL [Concomitant]
  4. LASIX [Concomitant]
  5. DIGOXIN [Concomitant]
  6. ADVAIR [Concomitant]
  7. COUMADIN [Concomitant]
  8. POTASSIUM [Concomitant]
  9. ASPIRIN [Concomitant]

REACTIONS (12)
  - Palpitations [Recovering/Resolving]
  - Flushing [Recovering/Resolving]
  - Headache [Recovering/Resolving]
  - Nausea [Recovering/Resolving]
  - Klebsiella sepsis [Not Recovered/Not Resolved]
  - Dehydration [Recovering/Resolving]
  - Blood creatinine increased [Recovering/Resolving]
  - Central venous catheterisation [Unknown]
  - Skin discolouration [Not Recovered/Not Resolved]
  - Device related infection [Unknown]
  - Fatigue [Unknown]
  - Decreased appetite [Unknown]
